FAERS Safety Report 12735690 (Version 1)
Quarter: 2016Q3

REPORT INFORMATION
  Report Type: Spontaneous
  Country: JP (occurrence: JP)
  Receive Date: 20160912
  Receipt Date: 20160912
  Transmission Date: 20161109
  Serious: Yes (Hospitalization, Other)
  Sender: FDA-Public Use
  Company Number: JP-GLAXOSMITHKLINE-JP2016JPN129170

PATIENT
  Age: 34 Year
  Sex: Female

DRUGS (2)
  1. FLOLAN [Suspect]
     Active Substance: EPOPROSTENOL SODIUM
     Indication: PULMONARY ARTERIAL HYPERTENSION
     Route: 041
  2. TADALAFIL [Suspect]
     Active Substance: TADALAFIL
     Route: 065

REACTIONS (6)
  - Respiratory disorder [Recovering/Resolving]
  - Condition aggravated [Recovering/Resolving]
  - Right ventricular failure [Recovering/Resolving]
  - Pulmonary vein occlusion [Recovering/Resolving]
  - Exposure during pregnancy [Unknown]
  - Live birth [Unknown]
